FAERS Safety Report 7230631-5 (Version None)
Quarter: 2011Q1

REPORT INFORMATION
  Report Type: 
  Country: None (occurrence: None)
  Receive Date: 20110118
  Receipt Date: 20110113
  Transmission Date: 20110831
  Serious: Yes (Death)
  Sender: FDA-Public Use
  Company Number: PHHY2010DE46725

PATIENT
  Sex: Female
  Weight: 82 kg

DRUGS (6)
  1. ACETYLCYSTEINE [Concomitant]
  2. CGS 20267 [Suspect]
     Indication: BREAST CANCER
     Dosage: 2.5 MG DAILY
     Route: 048
  3. LAXOBERAL [Concomitant]
  4. ALLOPURINOL [Concomitant]
  5. TAXOTERE [Concomitant]
  6. VITAC [Concomitant]

REACTIONS (2)
  - NEOPLASM MALIGNANT [None]
  - CHRONIC LYMPHOCYTIC LEUKAEMIA [None]
